FAERS Safety Report 6529544-3 (Version None)
Quarter: 2010Q1

REPORT INFORMATION
  Report Type: 
  Country: None (occurrence: None)
  Receive Date: 20100107
  Receipt Date: 20091228
  Transmission Date: 20100710
  Serious: Yes (Hospitalization)
  Sender: FDA-Public Use
  Company Number: IT-BRACCO-000608

PATIENT
  Sex: Female

DRUGS (7)
  1. MULTIHANCE [Suspect]
     Indication: NUCLEAR MAGNETIC RESONANCE IMAGING
     Dosage: 0.1 ML PER KG
     Route: 042
     Dates: start: 20091223, end: 20091223
  2. EBRANTIL [Concomitant]
     Dates: start: 20091223
  3. OXYGEN [Concomitant]
     Route: 055
     Dates: start: 20091223, end: 20091223
  4. LASIX [Concomitant]
     Dates: start: 20091223
  5. CETIRIZINE HCL [Concomitant]
  6. DELTACORTENE [Concomitant]
  7. CETIRIZINE [Concomitant]

REACTIONS (3)
  - CONTRAST MEDIA REACTION [None]
  - HYPERTENSIVE CRISIS [None]
  - HYPOXIA [None]
